FAERS Safety Report 7037681-2 (Version None)
Quarter: 2010Q4

REPORT INFORMATION
  Report Type: 
  Country: None (occurrence: None)
  Receive Date: 20101011
  Receipt Date: 20100929
  Transmission Date: 20110411
  Serious: Yes (Hospitalization)
  Sender: FDA-Public Use
  Company Number: US-ELI_LILLY_AND_COMPANY-US201010000898

PATIENT
  Sex: Female

DRUGS (8)
  1. FORTEO [Suspect]
     Indication: OSTEOPOROSIS
     Dosage: 20 MG, DAILY (1/D)
     Dates: start: 20100120
  2. CATAPRES /UNK/ [Concomitant]
  3. CALCIUM [Concomitant]
  4. TENORMIN [Concomitant]
  5. MAXZIDE [Concomitant]
  6. ZOCOR [Concomitant]
  7. TICLID [Concomitant]
  8. MULTI-VITAMIN [Concomitant]

REACTIONS (3)
  - ANKLE FRACTURE [None]
  - HAIR TEXTURE ABNORMAL [None]
  - MALAISE [None]
